FAERS Safety Report 11908304 (Version 10)
Quarter: 2016Q2

REPORT INFORMATION
  Report Type: Spontaneous
  Country: US (occurrence: US)
  Receive Date: 20160111
  Receipt Date: 20160617
  Transmission Date: 20160815
  Serious: Yes (Hospitalization)
  Sender: FDA-Public Use
  Company Number: US-PFIZER INC-2016009518

PATIENT
  Age: 84 Year
  Sex: Female
  Weight: 89 kg

DRUGS (10)
  1. SUTENT [Suspect]
     Active Substance: SUNITINIB MALATE
     Dosage: 25 MG, CYCLIC (DAILY FOR 2 WEEKS ON/1 WEEK OFF)
     Dates: start: 20160316
  2. VITAMIN B12 [Concomitant]
     Active Substance: CYANOCOBALAMIN
     Dosage: UNK
  3. DIGOXIN. [Concomitant]
     Active Substance: DIGOXIN
     Dosage: UNK
     Dates: start: 201601
  4. LASIX [Concomitant]
     Active Substance: FUROSEMIDE
     Dosage: UNK
  5. METOPROLOL. [Concomitant]
     Active Substance: METOPROLOL
     Dosage: UNK
  6. COZAAR [Concomitant]
     Active Substance: LOSARTAN POTASSIUM
     Indication: BLOOD PRESSURE MEASUREMENT
     Dosage: UNK
  7. PRADAXA [Concomitant]
     Active Substance: DABIGATRAN ETEXILATE MESYLATE
     Dosage: UNK
  8. SYNTHROID [Concomitant]
     Active Substance: LEVOTHYROXINE SODIUM
     Dosage: UNK
  9. SUTENT [Suspect]
     Active Substance: SUNITINIB MALATE
     Indication: METASTATIC RENAL CELL CARCINOMA
     Dosage: 25 MG, CYCLIC (DAILY FOR 2 WEEKS ON/1 WEEK OFF)
     Dates: start: 20151212, end: 20160302
  10. POTASSIUM [Concomitant]
     Active Substance: POTASSIUM
     Dosage: UNK

REACTIONS (25)
  - Sensitivity of teeth [Recovered/Resolved]
  - Epistaxis [Recovered/Resolved]
  - Dyspepsia [Not Recovered/Not Resolved]
  - Fatigue [Not Recovered/Not Resolved]
  - Dysgeusia [Not Recovered/Not Resolved]
  - Malaise [Unknown]
  - Dry mouth [Recovered/Resolved]
  - Nausea [Recovered/Resolved]
  - Gingival pain [Recovered/Resolved]
  - Increased viscosity of bronchial secretion [Unknown]
  - Pneumonia [Recovered/Resolved]
  - Blood pressure abnormal [Unknown]
  - Heart rate abnormal [Recovered/Resolved]
  - Oral pain [Recovered/Resolved]
  - Dizziness [Unknown]
  - Peripheral swelling [Unknown]
  - Hypotension [Unknown]
  - Glossodynia [Recovered/Resolved]
  - Rhinorrhoea [Recovered/Resolved]
  - Palmar-plantar erythrodysaesthesia syndrome [Recovering/Resolving]
  - Cough [Unknown]
  - Skin exfoliation [Not Recovered/Not Resolved]
  - Muscle spasms [Not Recovered/Not Resolved]
  - Retching [Recovered/Resolved]
  - Gait disturbance [Recovered/Resolved]

NARRATIVE: CASE EVENT DATE: 20160102
